FAERS Safety Report 12352770 (Version 1)
Quarter: 2016Q2

REPORT INFORMATION
  Report Type: Spontaneous
  Country: US (occurrence: US)
  Receive Date: 20160510
  Receipt Date: 20160510
  Transmission Date: 20160815
  Serious: No
  Sender: FDA-Public Use
  Company Number: ADR-2015-01250

PATIENT
  Age: 67 Year
  Sex: Female

DRUGS (4)
  1. TEMAZEPAM. [Suspect]
     Active Substance: TEMAZEPAM
  2. OXAZEPAM. [Suspect]
     Active Substance: OXAZEPAM
  3. NORDIAZEPAM [Suspect]
     Active Substance: NORDAZEPAM
  4. COMPOUNDED BACLOFEN [Suspect]
     Active Substance: BACLOFEN
     Dosage: 845 MCG/DAY
     Route: 037

REACTIONS (2)
  - Muscle spasms [Unknown]
  - Pain [Unknown]

NARRATIVE: CASE EVENT DATE: 201505
